FAERS Safety Report 8911326 (Version 1)
Quarter: 2012Q4

REPORT INFORMATION
  Report Type: 
  Country: US (occurrence: US)
  Receive Date: 20121116
  Receipt Date: 20121116
  Transmission Date: 20130627
  Serious: No
  Sender: FDA-Public Use
  Company Number: US-GLAXOSMITHKLINE-A0997173A

PATIENT
  Sex: Male

DRUGS (5)
  1. VOTRIENT [Suspect]
     Indication: RENAL CELL CARCINOMA
     Dosage: 800MG Per day
     Route: 048
     Dates: start: 20100811
  2. LEVOTHYROXINE [Concomitant]
  3. METOPROLOL [Concomitant]
  4. ASPIRIN [Concomitant]
  5. LATANOPROST [Concomitant]

REACTIONS (5)
  - Diarrhoea [Recovering/Resolving]
  - Hair colour changes [Not Recovered/Not Resolved]
  - Thyroid function test abnormal [Recovered/Resolved]
  - Decreased appetite [Recovered/Resolved]
  - Weight decreased [Recovered/Resolved]
